FAERS Safety Report 9258504 (Version 4)
Quarter: 2013Q3

REPORT INFORMATION
  Report Type: Report from Study
  Country: US (occurrence: US)
  Receive Date: 20130426
  Receipt Date: 20130814
  Transmission Date: 20140515
  Serious: Yes (Death, Hospitalization)
  Sender: FDA-Public Use
  Company Number: US-ROCHE-1217981

PATIENT
  Age: 67 Year
  Sex: Male
  Weight: 100 kg

DRUGS (19)
  1. TOCILIZUMAB [Suspect]
     Indication: RHEUMATOID ARTHRITIS
     Dosage: MOST RECENT DOSE 25/MAR/2013, LAST DOSE : 8 MG/KG
     Route: 042
     Dates: start: 20120910
  2. ZOLPIDEM [Concomitant]
     Indication: INSOMNIA
     Route: 065
     Dates: start: 20120809
  3. POTASSIUM CHLORIDE [Concomitant]
  4. METHOTREXATE [Concomitant]
  5. FOLIC ACID [Concomitant]
  6. LASIX [Concomitant]
  7. METFORMIN [Concomitant]
  8. PROTONIX [Concomitant]
     Indication: GASTROOESOPHAGEAL REFLUX DISEASE
     Route: 065
     Dates: start: 201203
  9. CARVEDILOL [Concomitant]
  10. WARFARIN [Concomitant]
  11. FERROUS SULFATE [Concomitant]
     Indication: ANAEMIA
     Route: 065
     Dates: start: 201108
  12. AMIODARONE [Concomitant]
     Indication: ARRHYTHMIA
     Route: 065
     Dates: start: 200909
  13. LORTAB [Concomitant]
     Indication: ARTHRALGIA
     Route: 065
     Dates: start: 201203
  14. PREDNISONE [Concomitant]
     Route: 065
     Dates: start: 201203
  15. ROCEPHIN [Concomitant]
     Indication: PNEUMONIA
  16. CELESTONE [Concomitant]
     Indication: PNEUMONIA
  17. AVELOX [Concomitant]
     Indication: PNEUMONIA
  18. SYMBICORT [Concomitant]
     Indication: PNEUMONIA
  19. ALBUTEROL [Concomitant]
     Indication: PNEUMONIA

REACTIONS (1)
  - Cerebrovascular accident [Fatal]
